FAERS Safety Report 14720848 (Version 2)
Quarter: 2018Q2

REPORT INFORMATION
  Report Type: Spontaneous
  Country: IT (occurrence: IT)
  Receive Date: 20180405
  Receipt Date: 20180517
  Transmission Date: 20180711
  Serious: Yes (Life-Threatening)
  Sender: FDA-Public Use
  Company Number: IT-GUERBET-IT-20180071

PATIENT
  Age: 71 Year
  Sex: Female
  Weight: 60 kg

DRUGS (1)
  1. DOTAREM [Suspect]
     Active Substance: GADOTERATE MEGLUMINE
     Indication: INVESTIGATION
     Route: 042
     Dates: start: 20180222, end: 20180222

REACTIONS (5)
  - Hypovolaemic shock [Not Recovered/Not Resolved]
  - Dehydration [Not Recovered/Not Resolved]
  - Cardiac arrest [Recovered/Resolved]
  - Vomiting [Not Recovered/Not Resolved]
  - Diarrhoea [Not Recovered/Not Resolved]

NARRATIVE: CASE EVENT DATE: 20180222
